FAERS Safety Report 20459848 (Version 1)
Quarter: 2022Q1

REPORT INFORMATION
  Report Type: Other
  Country: IT (occurrence: None)
  Receive Date: 20220211
  Receipt Date: 20220211
  Transmission Date: 20220423
  Serious: Yes (Other)
  Sender: FDA-Public Use
  Company Number: IT-ROCHE-3003162

PATIENT

DRUGS (2)
  1. TOCILIZUMAB [Suspect]
     Active Substance: TOCILIZUMAB
     Indication: COVID-19 pneumonia
     Dosage: 8 MG/KG (MAXIMUM DOSE PER SINGLE INFUSION: 800 MG), FIRST DOSE AT TIME 0 AND A SECOND DOSE AFTER 12
     Route: 042
  2. TOCILIZUMAB [Suspect]
     Active Substance: TOCILIZUMAB
     Indication: COVID-19 pneumonia
     Dosage: 162 MG VIALS FOR A TOTAL OF 2 TO 4 ADMINISTRATION, DEPENDING ON PATIENT^S WEIGHT
     Route: 058

REACTIONS (3)
  - Off label use [Unknown]
  - Bacterial sepsis [Unknown]
  - Oesophageal candidiasis [Unknown]
